FAERS Safety Report 7076145-7 (Version None)
Quarter: 2010Q4

REPORT INFORMATION
  Report Type: 
  Country: None (occurrence: None)
  Receive Date: 20101101
  Receipt Date: 20101014
  Transmission Date: 20110411
  Serious: Yes (Hospitalization, Other)
  Sender: FDA-Public Use
  Company Number: US-BAYER-200938755NA

PATIENT
  Age: 44 Year
  Sex: Female
  Weight: 52 kg

DRUGS (3)
  1. YAZ [Suspect]
  2. YASMIN [Suspect]
     Route: 048
     Dates: start: 20030101, end: 20090901
  3. DROSPIRENONE AND ETHINYL ESTRADIOL [Suspect]
     Route: 048
     Dates: start: 20040101, end: 20090901

REACTIONS (1)
  - PULMONARY EMBOLISM [None]
